FAERS Safety Report 4916457-3 (Version None)
Quarter: 2006Q1

REPORT INFORMATION
  Report Type: 
  Country: None (occurrence: None)
  Receive Date: 20060214
  Receipt Date: 20060130
  Transmission Date: 20060701
  Serious: Yes (Other)
  Sender: FDA-Public Use
  Company Number: VNL_0006_2006

PATIENT
  Sex: Female

DRUGS (2)
  1. APO-GO [Suspect]
     Indication: PARKINSON'S DISEASE
     Dosage: DF SC
     Route: 058
  2. LEVODOPA [Concomitant]

REACTIONS (1)
  - HAEMOLYTIC ANAEMIA [None]
